FAERS Safety Report 7342780-1 (Version None)
Quarter: 2011Q1

REPORT INFORMATION
  Report Type: 
  Country: None (occurrence: None)
  Receive Date: 20110310
  Receipt Date: 20100913
  Transmission Date: 20110831
  Serious: Yes (Hospitalization)
  Sender: FDA-Public Use
  Company Number: US-BAYER-201027071NA

PATIENT
  Sex: Female
  Weight: 107 kg

DRUGS (5)
  1. ATENOLOL [Concomitant]
     Indication: HYPERTENSION
     Dosage: UNK
  2. YAZ [Suspect]
     Dosage: UNK
     Route: 048
     Dates: start: 20080101, end: 20100301
  3. HYDROCHLOROTHIAZIDE [Concomitant]
     Indication: HYPERTENSION
     Dosage: UNK
  4. ALBUTEROL [Concomitant]
     Indication: DYSPNOEA
     Dosage: UNK
  5. MONOPRIL [Concomitant]

REACTIONS (4)
  - CHOLECYSTITIS CHRONIC [None]
  - PAIN [None]
  - CHOLELITHIASIS [None]
  - CHOLECYSTITIS ACUTE [None]
